FAERS Safety Report 4330361-3 (Version None)
Quarter: 2004Q1

REPORT INFORMATION
  Report Type: 
  Country: None (occurrence: None)
  Receive Date: 20040329
  Receipt Date: 20040315
  Transmission Date: 20041129
  Serious: Yes (Hospitalization)
  Sender: FDA-Public Use
  Company Number: 04P-163-0248998-00

PATIENT
  Age: 16 Year
  Sex: Female

DRUGS (3)
  1. DEPAKENE [Suspect]
     Indication: BIPOLAR DISORDER
     Dosage: SEE IMAGE
     Route: 048
  2. NEFAZODONE [Concomitant]
  3. OLANZAPINE [Concomitant]

REACTIONS (3)
  - ELECTROCARDIOGRAM ST SEGMENT DEPRESSION [None]
  - ELECTROCARDIOGRAM T WAVE INVERSION [None]
  - INTENTIONAL OVERDOSE [None]
